FAERS Safety Report 6557899-2 (Version None)
Quarter: 2010Q1

REPORT INFORMATION
  Report Type: 
  Country: None (occurrence: None)
  Receive Date: 20100129
  Receipt Date: 20100120
  Transmission Date: 20100710
  Serious: Yes (Other)
  Sender: FDA-Public Use
  Company Number: US-ROCHE-463439

PATIENT
  Sex: Female
  Weight: 52.2 kg

DRUGS (4)
  1. BONIVA [Suspect]
     Indication: OSTEOPOROSIS
     Dosage: FORM: PILL
     Route: 048
     Dates: start: 20051001
  2. BONIVA [Suspect]
     Dosage: FORM: PILL
     Route: 048
     Dates: start: 20080103
  3. BONIVA [Suspect]
     Dosage: DOSE: 3MG/3ML
     Route: 042
  4. PLAVIX [Concomitant]

REACTIONS (7)
  - ABDOMINAL DISCOMFORT [None]
  - BONE DENSITY DECREASED [None]
  - CARDIAC DISORDER [None]
  - DIZZINESS [None]
  - DRUG INEFFECTIVE [None]
  - FALL [None]
  - HIP FRACTURE [None]
